FAERS Safety Report 20195285 (Version 1)
Quarter: 2021Q4

REPORT INFORMATION
  Report Type: Spontaneous
  Country: CN (occurrence: CN)
  Receive Date: 20211216
  Receipt Date: 20211216
  Transmission Date: 20220303
  Serious: Yes (Other)
  Sender: FDA-Public Use
  Company Number: CN-GRUNENTHAL-2021-272480

PATIENT
  Age: 58 Year
  Sex: Female
  Weight: 60 kg

DRUGS (1)
  1. TRAMADOL HYDROCHLORIDE [Suspect]
     Active Substance: TRAMADOL HYDROCHLORIDE
     Indication: Back pain
     Dosage: 100 MILLIGRAM, 1/DAY
     Route: 041
     Dates: start: 20211001, end: 20211001

REACTIONS (4)
  - Shock [Recovering/Resolving]
  - Feeling cold [Recovering/Resolving]
  - Dyspnoea [Recovering/Resolving]
  - Convulsions local [Recovering/Resolving]

NARRATIVE: CASE EVENT DATE: 20211001
